FAERS Safety Report 9088080 (Version 1)
Quarter: 2013Q1

REPORT INFORMATION
  Report Type: Report from Study
  Country: US (occurrence: US)
  Receive Date: 20130201
  Receipt Date: 20130201
  Transmission Date: 20140127
  Serious: No
  Sender: FDA-Public Use
  Company Number: US-ABBOTT-12P-163-1024896-00

PATIENT
  Age: 54 Year
  Sex: Female

DRUGS (5)
  1. HUMIRA [Suspect]
     Indication: RHEUMATOID ARTHRITIS
     Route: 058
     Dates: start: 20120924
  2. PREDNISONE [Concomitant]
     Indication: PRODUCT USED FOR UNKNOWN INDICATION
  3. NAPROXEN [Concomitant]
     Indication: PAIN
     Dosage: TWICE DAILY, AS NEEDED
  4. IBUPROFEN [Concomitant]
     Indication: PAIN
     Dosage: 800 MG DAILY, AS NEEDED
  5. NIFEDICAL [Concomitant]
     Indication: HYPERTENSION
     Dosage: 30 MG DAILY

REACTIONS (2)
  - Arthralgia [Not Recovered/Not Resolved]
  - Local swelling [Not Recovered/Not Resolved]
